FAERS Safety Report 21340575 (Version 1)
Quarter: 2022Q3

REPORT INFORMATION
  Report Type: Spontaneous
  Country: US (occurrence: US)
  Receive Date: 20220916
  Receipt Date: 20220916
  Transmission Date: 20221027
  Serious: No
  Sender: FDA-Public Use
  Company Number: US-AMGEN-USASP2022159643

PATIENT
  Sex: Female

DRUGS (9)
  1. OTEZLA [Suspect]
     Active Substance: APREMILAST
     Indication: Psoriatic arthropathy
     Dosage: 30 MILLIGRAM, BID
     Route: 048
  2. BACLOFEN [Concomitant]
     Active Substance: BACLOFEN
  3. CLOBETASOL PROPIONATE [Concomitant]
     Active Substance: CLOBETASOL PROPIONATE
  4. LOVASTATIN [Concomitant]
     Active Substance: LOVASTATIN
  5. METFORMIN HYDROCHLORIDE [Concomitant]
     Active Substance: METFORMIN HYDROCHLORIDE
  6. TRULICITY [Concomitant]
     Active Substance: DULAGLUTIDE
  7. MELOXICAM [Concomitant]
     Active Substance: MELOXICAM
  8. LIDOCAINE [Concomitant]
     Active Substance: LIDOCAINE
  9. GABAPENTIN [Concomitant]
     Active Substance: GABAPENTIN

REACTIONS (1)
  - Drug ineffective [Unknown]
